FAERS Safety Report 18304125 (Version 2)
Quarter: 2020Q4

REPORT INFORMATION
  Report Type: Spontaneous
  Country: JP (occurrence: JP)
  Receive Date: 20200923
  Receipt Date: 20201015
  Transmission Date: 20210113
  Serious: Yes (Other)
  Sender: FDA-Public Use
  Company Number: JP-AMGEN-JPNSP2020151015

PATIENT
  Age: 39 Year
  Sex: Male

DRUGS (2)
  1. OTEZLA [Suspect]
     Active Substance: APREMILAST
     Dosage: 30 MILLIGRAM, BID
     Route: 048
  2. OTEZLA [Suspect]
     Active Substance: APREMILAST
     Indication: PSORIASIS
     Dosage: 30 MILLIGRAM, BID
     Route: 048

REACTIONS (7)
  - Acute cutaneous lupus erythematosus [Unknown]
  - Psoriasis [Recovering/Resolving]
  - Seborrhoeic dermatitis [Unknown]
  - Malaise [Unknown]
  - Pyrexia [Unknown]
  - Systemic lupus erythematosus [Recovering/Resolving]
  - Lupus nephritis [Unknown]
